FAERS Safety Report 19458382 (Version 1)
Quarter: 2021Q2

REPORT INFORMATION
  Report Type: Spontaneous
  Country: IT (occurrence: IT)
  Receive Date: 20210624
  Receipt Date: 20210624
  Transmission Date: 20210717
  Serious: Yes (Other)
  Sender: FDA-Public Use
  Company Number: IT-AMGEN-ITASP2021093485

PATIENT
  Age: 40 Year
  Sex: Male
  Weight: 87 kg

DRUGS (2)
  1. XGEVA [Suspect]
     Active Substance: DENOSUMAB
     Indication: HYPERCALCAEMIA
     Dosage: 120 MILLIGRAM, 1 FL,  QMO
     Route: 065
     Dates: start: 20191009
  2. XGEVA [Suspect]
     Active Substance: DENOSUMAB
     Indication: OFF LABEL USE

REACTIONS (3)
  - Metastases to liver [Recovering/Resolving]
  - Leukopenia [Unknown]
  - Off label use [Unknown]

NARRATIVE: CASE EVENT DATE: 2019
